FAERS Safety Report 24142754 (Version 1)
Quarter: 2024Q3

REPORT INFORMATION
  Report Type: Report from Study
  Country: MX (occurrence: MX)
  Receive Date: 20240726
  Receipt Date: 20240726
  Transmission Date: 20241017
  Serious: Yes (Disabling)
  Sender: NOVARTIS
  Company Number: MX-002147023-NVSC2024MX138577

PATIENT
  Age: 49 Year
  Sex: Female
  Weight: 46 kg

DRUGS (3)
  1. INCLISIRAN [Suspect]
     Active Substance: INCLISIRAN
     Indication: Cardiac failure
     Dosage: 300 MG, OTHER (EVERY THREE MONTHS) (INITIAL DOSE) (INTIAL DOSE)
     Route: 058
     Dates: start: 20240527, end: 20240527
  2. INCLISIRAN [Suspect]
     Active Substance: INCLISIRAN
     Indication: Transcatheter aortic valve implantation
  3. ASPIRIN [Concomitant]
     Active Substance: ASPIRIN
     Indication: Prophylaxis
     Dosage: 1 DOSAGE FORM, QD (3 MONTHS AGO)
     Route: 048

REACTIONS (5)
  - Vertigo [Recovering/Resolving]
  - Nausea [Recovering/Resolving]
  - Dizziness [Recovering/Resolving]
  - Headache [Recovering/Resolving]
  - Product use in unapproved indication [Unknown]

NARRATIVE: CASE EVENT DATE: 20240527
